FAERS Safety Report 7980836-0 (Version None)
Quarter: 2011Q4

REPORT INFORMATION
  Report Type: 
  Country: None (occurrence: None)
  Receive Date: 20111214
  Receipt Date: 20111212
  Transmission Date: 20120403
  Serious: Yes (Death, Hospitalization)
  Sender: FDA-Public Use
  Company Number: GB-ROCHE-1017965

PATIENT
  Age: 40 Year
  Sex: Female
  Weight: 66.6 kg

DRUGS (1)
  1. VEMURAFENIB [Suspect]
     Indication: METASTATIC MALIGNANT MELANOMA
     Route: 048
     Dates: start: 20111011, end: 20111205

REACTIONS (2)
  - PAIN [None]
  - HAEMOGLOBIN DECREASED [None]
